FAERS Safety Report 4612222-5 (Version None)
Quarter: 2005Q2

REPORT INFORMATION
  Report Type: 
  Country: None (occurrence: None)
  Receive Date: 20050308
  Receipt Date: 20041122
  Transmission Date: 20051028
  Serious: Yes (Other)
  Sender: FDA-Public Use
  Company Number: 2004UW23977

PATIENT
  Age: 56 Year
  Sex: Male

DRUGS (4)
  1. CRESTOR [Suspect]
     Indication: BLOOD CHOLESTEROL INCREASED
     Dosage: 10 MG DAILY PO
     Route: 048
  2. BLOOD PRESSURE MEDICATION [Concomitant]
  3. MINOCYCLINE HCL [Concomitant]
  4. METRONIDAZOLE CREAM [Concomitant]

REACTIONS (1)
  - ROSACEA [None]
